FAERS Safety Report 6899148-1 (Version None)
Quarter: 2010Q3

REPORT INFORMATION
  Report Type: 
  Country: None (occurrence: None)
  Receive Date: 20100802
  Receipt Date: 20080117
  Transmission Date: 20110219
  Serious: No
  Sender: FDA-Public Use
  Company Number: US-PFIZER INC-2008002367

PATIENT
  Sex: Female
  Weight: 68 kg

DRUGS (8)
  1. LYRICA [Suspect]
     Indication: FIBROMYALGIA
     Dates: start: 20071001
  2. SKELAXIN [Concomitant]
     Indication: FIBROMYALGIA
  3. PREMARIN [Concomitant]
  4. LEVOTHYROXINE SODIUM [Concomitant]
     Indication: THYROID DISORDER
  5. PROTONIX [Concomitant]
     Indication: ULCER
  6. FUROSEMIDE [Concomitant]
  7. KLOR-CON [Concomitant]
     Indication: SWELLING
  8. OPIOIDS [Concomitant]
     Indication: PAIN
     Dates: start: 20070101

REACTIONS (3)
  - AMNESIA [None]
  - PAIN [None]
  - STRESS [None]
